FAERS Safety Report 21669436 (Version 2)
Quarter: 2022Q4

REPORT INFORMATION
  Report Type: Other
  Country: IT (occurrence: IT)
  Receive Date: 20221201
  Receipt Date: 20221213
  Transmission Date: 20230112
  Serious: Yes (Disabling, Other)
  Sender: FDA-Public Use
  Company Number: None

PATIENT

DRUGS (3)
  1. RUXOLITINIB [Suspect]
     Active Substance: RUXOLITINIB
     Indication: Polycythaemia vera
     Dosage: 15 MG, BID
     Route: 048
     Dates: start: 20190121, end: 20221111
  2. ASPIRIN [Concomitant]
     Active Substance: ASPIRIN
     Indication: Polycythaemia vera
     Dosage: UNK
     Route: 065
  3. ALLOPURINOL [Concomitant]
     Active Substance: ALLOPURINOL
     Indication: Product used for unknown indication
     Dosage: UNK
     Route: 065

REACTIONS (6)
  - Squamous cell carcinoma [Not Recovered/Not Resolved]
  - Metastases to eye [Unknown]
  - Eyelid ptosis [Unknown]
  - Second primary malignancy [Unknown]
  - Metastases to nervous system [Unknown]
  - Metastases to soft tissue [Unknown]

NARRATIVE: CASE EVENT DATE: 20220627
